FAERS Safety Report 5575737-1 (Version None)
Quarter: 2007Q4

REPORT INFORMATION
  Report Type: 
  Country: None (occurrence: None)
  Receive Date: 20071221
  Receipt Date: 20071210
  Transmission Date: 20080405
  Serious: Yes (Hospitalization)
  Sender: FDA-Public Use
  Company Number: IND-AE-07-SAN-060

PATIENT
  Age: 56 Year
  Sex: Female

DRUGS (2)
  1. CERIS? (TROSPIUM CHLORIDE) MADAUS [Suspect]
     Indication: NEUROGENIC BLADDER
     Dosage: 20MG - PO
     Route: 048
  2. BOTOX [Suspect]
     Indication: NEUROGENIC BLADDER
     Dosage: 300 U - INTRAVESCULAR
     Route: 043
     Dates: start: 20070613, end: 20070716

REACTIONS (4)
  - CONSTIPATION [None]
  - DRUG EFFECT DECREASED [None]
  - DYSPNOEA [None]
  - FLATULENCE [None]
